FAERS Safety Report 5156181-8 (Version None)
Quarter: 2006Q4

REPORT INFORMATION
  Report Type: 
  Country: None (occurrence: None)
  Receive Date: 20061122
  Receipt Date: 20061117
  Transmission Date: 20070319
  Serious: Yes (Other)
  Sender: FDA-Public Use
  Company Number: DE-BAYER-200611560BVD

PATIENT
  Age: 78 Year
  Sex: Male

DRUGS (1)
  1. ASPIRIN [Suspect]
     Indication: UNEVALUABLE EVENT
     Route: 048
     Dates: start: 20051201

REACTIONS (1)
  - PULMONARY FIBROSIS [None]
